FAERS Safety Report 6677554-8 (Version None)
Quarter: 2010Q2

REPORT INFORMATION
  Report Type: 
  Country: None (occurrence: None)
  Receive Date: 20100412
  Receipt Date: 20100216
  Transmission Date: 20101027
  Serious: No
  Sender: FDA-Public Use
  Company Number: US-ALEXION-A201000205

PATIENT

DRUGS (1)
  1. SOLIRIS [Suspect]
     Dosage: 600 MG, QWKX4
     Route: 042
     Dates: start: 20100201

REACTIONS (2)
  - BLOOD LACTATE DEHYDROGENASE INCREASED [None]
  - HAEMOLYSIS [None]
